FAERS Safety Report 15871817 (Version 1)
Quarter: 2019Q1

REPORT INFORMATION
  Report Type: Spontaneous
  Country: US (occurrence: US)
  Receive Date: 20190126
  Receipt Date: 20190126
  Transmission Date: 20190417
  Serious: No
  Sender: FDA-Public Use
  Company Number: US-ACORDA-ACO_147187_2018

PATIENT
  Sex: Female

DRUGS (1)
  1. AMPYRA [Suspect]
     Active Substance: DALFAMPRIDINE
     Indication: GAIT DISTURBANCE
     Dosage: UNK
     Route: 065
     Dates: start: 2009

REACTIONS (13)
  - Nervousness [Unknown]
  - Pain [Unknown]
  - Product dose omission [Unknown]
  - Gait disturbance [Unknown]
  - Musculoskeletal stiffness [Unknown]
  - Inappropriate schedule of product administration [Unknown]
  - Fall [Unknown]
  - Balance disorder [Unknown]
  - Condition aggravated [Unknown]
  - Disease progression [Unknown]
  - Agitation [Unknown]
  - Peroneal nerve palsy [Unknown]
  - Feeling abnormal [Unknown]
